APPROVED DRUG PRODUCT: GLUCAGON
Active Ingredient: GLUCAGON
Strength: 1MG/VIAL
Dosage Form/Route: INJECTABLE;INJECTION
Application: A208086 | Product #001 | TE Code: AP
Applicant: AMPHASTAR PHARMACEUTICALS INC
Approved: Dec 28, 2020 | RLD: No | RS: Yes | Type: RX